FAERS Safety Report 17747767 (Version 1)
Quarter: 2020Q2

REPORT INFORMATION
  Report Type: Spontaneous
  Country: US (occurrence: US)
  Receive Date: 20200505
  Receipt Date: 20200505
  Transmission Date: 20200714
  Serious: No
  Sender: FDA-Public Use
  Company Number: US-ROCHE-2184817

PATIENT
  Sex: Female

DRUGS (2)
  1. ESBRIET [Suspect]
     Active Substance: PIRFENIDONE
     Route: 048
     Dates: start: 20190719
  2. ESBRIET [Suspect]
     Active Substance: PIRFENIDONE
     Indication: IDIOPATHIC PULMONARY FIBROSIS
     Route: 048
     Dates: start: 20180718

REACTIONS (11)
  - Abdominal discomfort [Unknown]
  - Rash [Unknown]
  - Insomnia [Unknown]
  - Dyspepsia [Unknown]
  - Bladder disorder [Unknown]
  - Diarrhoea [Unknown]
  - Skin irritation [Unknown]
  - Abdominal distension [Unknown]
  - Gastrointestinal disorder [Unknown]
  - Flatulence [Unknown]
  - Skin disorder [Unknown]
